FAERS Safety Report 4642942-8 (Version None)
Quarter: 2005Q2

REPORT INFORMATION
  Report Type: 
  Country: None (occurrence: None)
  Receive Date: 20050421
  Receipt Date: 20030707
  Transmission Date: 20051028
  Serious: Yes (Hospitalization, Other)
  Sender: FDA-Public Use
  Company Number: CA_050307821

PATIENT
  Age: 49 Year
  Sex: Male

DRUGS (11)
  1. HUMALOG [Suspect]
     Indication: DIABETES MELLITUS INSULIN-DEPENDENT
     Dosage: UNK
     Dates: start: 19970116
  2. HUMULIN U [Suspect]
     Indication: DIABETES MELLITUS INSULIN-DEPENDENT
     Dosage: 30 U AT BEDTIME
     Dates: start: 19870101
  3. VASOTEC [Concomitant]
  4. NOVASEN (ACETYLSALICYLIC ACID) [Concomitant]
  5. VERAPAMIL [Concomitant]
  6. ZOCOR (SIMVASTATIN RATIOPHARM) [Concomitant]
  7. NITRO-SPRAY (ISOSORBIDE DINITRATE) [Concomitant]
  8. ENALAPRIL [Concomitant]
  9. ISOPTIN [Concomitant]
  10. VITAMIN E [Concomitant]
  11. VITAMIN C [Concomitant]

REACTIONS (22)
  - BLOOD GLUCOSE INCREASED [None]
  - BLOOD SODIUM DECREASED [None]
  - CHEST DISCOMFORT [None]
  - CORONARY ARTERY DISEASE [None]
  - DIABETIC NEUROPATHY [None]
  - ECCHYMOSIS [None]
  - FATIGUE [None]
  - GLYCOSYLATED HAEMOGLOBIN DECREASED [None]
  - HYPOGLYCAEMIA [None]
  - HYPOGLYCAEMIA UNAWARENESS [None]
  - INJURY [None]
  - LOSS OF CONSCIOUSNESS [None]
  - MEMORY IMPAIRMENT [None]
  - ORAL INTAKE REDUCED [None]
  - PYREXIA [None]
  - RIB FRACTURE [None]
  - ROAD TRAFFIC ACCIDENT [None]
  - SKULL FRACTURE [None]
  - TIBIA FRACTURE [None]
  - TREMOR [None]
  - UPPER LIMB FRACTURE [None]
  - VISION BLURRED [None]
